FAERS Safety Report 4983734-X (Version None)
Quarter: 2006Q1

REPORT INFORMATION
  Report Type: 
  Country: None (occurrence: None)
  Receive Date: 20060301
  Receipt Date: 20051228
  Transmission Date: 20060701
  Serious: No
  Sender: FDA-Public Use
  Company Number: S05-USA-05372-01

PATIENT
  Age: 89 Year
  Sex: Female

DRUGS (8)
  1. NAMENDA [Suspect]
     Indication: DEMENTIA ALZHEIMER'S TYPE
     Dosage: 5 MG QD PO
     Route: 048
     Dates: start: 20051116, end: 20051122
  2. NAMENDA [Suspect]
     Indication: DEMENTIA ALZHEIMER'S TYPE
     Dosage: 5 MG BID PO
     Route: 048
     Dates: start: 20051123, end: 20051129
  3. NAMENDA [Suspect]
     Indication: DEMENTIA ALZHEIMER'S TYPE
     Dosage: 15 MG QD PO
     Route: 048
     Dates: start: 20051130, end: 20051206
  4. NAMENDA [Suspect]
     Indication: DEMENTIA ALZHEIMER'S TYPE
     Dosage: 10 MG BID PO
     Route: 048
     Dates: start: 20051207
  5. ARICEPT [Concomitant]
  6. DETROL [Concomitant]
  7. NORVASC [Concomitant]
  8. SIMVASTATIN [Concomitant]

REACTIONS (2)
  - COUGH [None]
  - HALLUCINATION, AUDITORY [None]
